FAERS Safety Report 10053457 (Version 2)
Quarter: 2014Q2

REPORT INFORMATION
  Report Type: Report from Study
  Country: LB (occurrence: LB)
  Receive Date: 20140402
  Receipt Date: 20140513
  Transmission Date: 20141212
  Serious: Yes (Hospitalization, Other)
  Sender: FDA-Public Use
  Company Number: PHHY2014LB039597

PATIENT
  Age: 67 Year
  Sex: Female

DRUGS (4)
  1. ACLASTA [Suspect]
     Indication: OSTEOPOROSIS
     Dosage: 5 MG, UNK
     Route: 041
     Dates: start: 20140417
  2. ANDOL [Concomitant]
     Dosage: 1 DF, UNK
     Route: 048
  3. TRAJENTA [Concomitant]
     Dosage: 1 DF, UNK
     Route: 048
  4. BIOCAL-D [Concomitant]
     Dosage: 1 DF, UNK
     Route: 048

REACTIONS (2)
  - Blood pressure increased [Recovered/Resolved]
  - Joint dislocation [Unknown]
